FAERS Safety Report 15677572 (Version 1)
Quarter: 2018Q4

REPORT INFORMATION
  Report Type: Spontaneous
  Country: US (occurrence: US)
  Receive Date: 20181130
  Receipt Date: 20181130
  Transmission Date: 20190205
  Serious: Yes (Death, Hospitalization, Other)
  Sender: FDA-Public Use
  Company Number: US-TEVA-2018-US-979640

PATIENT
  Age: 40 Year

DRUGS (9)
  1. KEPPRA [Concomitant]
     Active Substance: LEVETIRACETAM
     Indication: PRODUCT USED FOR UNKNOWN INDICATION
     Dosage: 750 MILLIGRAM DAILY;
     Dates: start: 20130530, end: 20180824
  2. COPAXONE [Suspect]
     Active Substance: GLATIRAMER ACETATE
     Indication: PRODUCT USED FOR UNKNOWN INDICATION
     Dosage: STRENGTH UNKNOWN
     Route: 065
  3. VALIUM [Concomitant]
     Active Substance: DIAZEPAM
     Dosage: 10 MILLIGRAM DAILY;
     Dates: start: 20140224, end: 20180824
  4. NORCO [Concomitant]
     Active Substance: ACETAMINOPHEN\HYDROCODONE BITARTRATE
     Indication: PAIN
     Dosage: 650 MILLIGRAM DAILY;
     Route: 048
     Dates: start: 20130530, end: 20180824
  5. VALIUM [Concomitant]
     Active Substance: DIAZEPAM
     Indication: PRODUCT USED FOR UNKNOWN INDICATION
     Dosage: 30 MILLIGRAM DAILY;
     Dates: start: 20130530, end: 20180824
  6. PREDNISONE. [Suspect]
     Active Substance: PREDNISONE
     Indication: PRODUCT USED FOR UNKNOWN INDICATION
     Route: 065
  7. CEPHALEXIN. [Suspect]
     Active Substance: CEPHALEXIN
     Indication: PRODUCT USED FOR UNKNOWN INDICATION
     Route: 065
  8. TYSABRI [Suspect]
     Active Substance: NATALIZUMAB
     Indication: MULTIPLE SCLEROSIS
     Route: 065
     Dates: start: 20130530
  9. AMPYRA [Suspect]
     Active Substance: DALFAMPRIDINE
     Indication: PRODUCT USED FOR UNKNOWN INDICATION
     Dosage: 10 MILLIGRAM DAILY; 1 EVERY MORNING FOR 4 WEEK
     Route: 048
     Dates: start: 20130530

REACTIONS (11)
  - Chronic kidney disease [Unknown]
  - Blood sodium decreased [Unknown]
  - Central nervous system lesion [Unknown]
  - Neuropathy peripheral [Unknown]
  - Insomnia [Unknown]
  - Restless legs syndrome [Unknown]
  - Syncope [Unknown]
  - Blood potassium decreased [Unknown]
  - Anxiety [Unknown]
  - Myocardial infarction [Fatal]
  - Hypersensitivity [Unknown]

NARRATIVE: CASE EVENT DATE: 201803
